FAERS Safety Report 14332104 (Version 1)
Quarter: 2017Q4

REPORT INFORMATION
  Report Type: Spontaneous
  Country: NL (occurrence: NL)
  Receive Date: 20171228
  Receipt Date: 20171228
  Transmission Date: 20180321
  Serious: Yes (Hospitalization, Disabling)
  Sender: FDA-Public Use
  Company Number: NL-CIPLA LTD.-2017NL28432

PATIENT

DRUGS (10)
  1. SERETIDE PUFJESSERETIDE AEROSOL 25/250MCG/DO CFKVR SPBS 120DO+INH [Concomitant]
     Dosage: UNK
     Route: 065
  2. VENTOLIN 100 AER CFKVR 100MCG/DO SPBS 200DO+INHAL [Concomitant]
     Dosage: UNK
     Route: 065
  3. METOCLOPRAMIDE 10MG OR/SUPP BIJ MISSELIJKHEID TGV CHEMOTHERAPIE [Concomitant]
     Dosage: UNK
     Route: 065
  4. ETOPOSIDE 120MG/M2 [Concomitant]
     Dosage: UNK
     Route: 065
  5. ENALAPRIL [Concomitant]
     Active Substance: ENALAPRIL
     Dosage: 10 MG PER DAY
     Route: 065
  6. CARBOPLATIN. [Suspect]
     Active Substance: CARBOPLATIN
     Indication: BRONCHIAL CARCINOMA
     Dosage: 570 MG, 1X PER 3 WEKEN MET AUC5: OP 13/6: 540MG GEHAD EN OP 4/7: 570MG GEHAD
     Route: 065
     Dates: start: 20170704, end: 20170915
  7. INNOHEP 1XDD 14.000IEINNOHEP INJVLST 20000 IE/ML WWSP 0,7ML [Concomitant]
     Dosage: 14000 IU PER DAY
     Route: 065
  8. HYDROCHLOORTHIAZIDE [Concomitant]
     Active Substance: HYDROCHLOROTHIAZIDE
     Dosage: 25 MG PER DAY
     Route: 065
  9. AMLODIPINE [Concomitant]
     Active Substance: AMLODIPINE BESYLATE
     Dosage: 5 MG PER DAY
     Route: 065
  10. METOCLOPRAMIDE 10MG OR/SUPP BIJ MISSELIJKHEID TGV CHEMOTHERAPIE [Concomitant]
     Dosage: UNK
     Route: 065

REACTIONS (2)
  - Vascular occlusion [Recovered/Resolved with Sequelae]
  - Leg amputation [Recovered/Resolved with Sequelae]

NARRATIVE: CASE EVENT DATE: 20170710
